FAERS Safety Report 7340815-3 (Version None)
Quarter: 2011Q1

REPORT INFORMATION
  Report Type: 
  Country: None (occurrence: None)
  Receive Date: 20110309
  Receipt Date: 20110302
  Transmission Date: 20110831
  Serious: Yes (Hospitalization, Other)
  Sender: FDA-Public Use
  Company Number: US-ROXANE LABORATORIES, INC.-2011-RO-00256RO

PATIENT
  Sex: Male

DRUGS (14)
  1. OXYCODONE [Concomitant]
     Dates: start: 20090525
  2. POTASSIUM CHLORIDE [Concomitant]
     Dates: start: 20090701
  3. LEVOTHYROXINE [Concomitant]
  4. RAMUCIRUMAB [Suspect]
     Indication: PROSTATE CANCER METASTATIC
     Route: 042
     Dates: start: 20080911
  5. PRILOSEC [Concomitant]
  6. VITAMIN D SUPPLEMENT [Concomitant]
     Dates: start: 20090312
  7. CRESTOR [Concomitant]
  8. PREDNISONE [Suspect]
  9. CIPRO [Concomitant]
  10. MITOXANTRONE [Suspect]
     Indication: PROSTATE CANCER METASTATIC
     Route: 042
     Dates: start: 20080911
  11. AMBIEN [Concomitant]
  12. LISINOPRIL [Concomitant]
     Dates: start: 20090514, end: 20090519
  13. ASPIRIN [Concomitant]
  14. VESICARE [Concomitant]

REACTIONS (3)
  - OESOPHAGEAL ULCER [None]
  - UROSEPSIS [None]
  - PROSTATE CANCER METASTATIC [None]
